FAERS Safety Report 9938647 (Version 2)
Quarter: 2014Q2

REPORT INFORMATION
  Report Type: Spontaneous
  Country: DE (occurrence: DE)
  Receive Date: 20140303
  Receipt Date: 20140520
  Transmission Date: 20141212
  Serious: Yes (Other)
  Sender: FDA-Public Use
  Company Number: DE-JNJFOC-20140217487

PATIENT
  Sex: Female
  Weight: 69.84 kg

DRUGS (2)
  1. XARELTO [Suspect]
     Indication: CEREBROVASCULAR ACCIDENT PROPHYLAXIS
     Route: 048
     Dates: start: 201201, end: 201309
  2. XARELTO [Suspect]
     Indication: ATRIAL FIBRILLATION
     Route: 048
     Dates: start: 201201, end: 201309

REACTIONS (6)
  - Age-related macular degeneration [Unknown]
  - Syncope [Unknown]
  - Haemorrhage subcutaneous [Unknown]
  - Retinal haemorrhage [Unknown]
  - Visual acuity reduced [Unknown]
  - Dizziness [Unknown]
